FAERS Safety Report 21464799 (Version 1)
Quarter: 2022Q4

REPORT INFORMATION
  Report Type: Spontaneous
  Country: US (occurrence: None)
  Receive Date: 20221014
  Receipt Date: 20221014
  Transmission Date: 20230112
  Serious: No
  Sender: FDA-Public Use
  Company Number: None

PATIENT
  Age: 63 Year
  Sex: Female
  Weight: 72.85 kg

DRUGS (17)
  1. IBRANCE [Suspect]
     Active Substance: PALBOCICLIB
     Indication: Breast cancer female
     Dosage: OTHER FREQUENCY : 21D OF 28DAYS;?
     Route: 048
  2. ACTOS [Concomitant]
     Active Substance: PIOGLITAZONE HYDROCHLORIDE
  3. ANASTROZOLE [Concomitant]
     Active Substance: ANASTROZOLE
  4. CLONAZEPAM [Concomitant]
     Active Substance: CLONAZEPAM
  5. CYMBALTA [Concomitant]
     Active Substance: DULOXETINE HYDROCHLORIDE
  6. DEPAKOTE ER [Concomitant]
     Active Substance: DIVALPROEX SODIUM
  7. DULOXETINE [Concomitant]
     Active Substance: DULOXETINE
  8. GABAPENTIN [Concomitant]
     Active Substance: GABAPENTIN
  9. GLIMEPIRIDE [Concomitant]
     Active Substance: GLIMEPIRIDE
  10. LEVOTHYROINE [Concomitant]
  11. LISINOPRIL [Concomitant]
     Active Substance: LISINOPRIL
  12. OLANZAPINE [Concomitant]
     Active Substance: OLANZAPINE
  13. OMEPRAZOLE [Concomitant]
     Active Substance: OMEPRAZOLE
  14. PERCOCET [Concomitant]
     Active Substance: ACETAMINOPHEN\OXYCODONE HYDROCHLORIDE
  15. ROSUVASTATIN [Concomitant]
     Active Substance: ROSUVASTATIN
  16. TRAZOSONE [Concomitant]
  17. ZOFRAN [Concomitant]
     Active Substance: ONDANSETRON HYDROCHLORIDE

REACTIONS (2)
  - Blood test abnormal [None]
  - Drug intolerance [None]
